FAERS Safety Report 16733900 (Version 1)
Quarter: 2019Q3

REPORT INFORMATION
  Report Type: Spontaneous
  Country: US (occurrence: US)
  Receive Date: 20190708
  Receipt Date: 20190708
  Transmission Date: 20191005
  Serious: Yes (Hospitalization)
  Sender: FDA-Public Use
  Company Number: None

PATIENT
  Age: 32 Year
  Sex: Female

DRUGS (11)
  1. STELARA [Suspect]
     Active Substance: USTEKINUMAB
     Indication: CROHN^S DISEASE
     Dosage: ?          OTHER FREQUENCY:Q 8 WKS;?
     Route: 058
  2. VITAMIN D [Concomitant]
     Active Substance: VITAMIN D NOS
  3. MEPHYTON [Concomitant]
     Active Substance: PHYTONADIONE
  4. URSODIOL. [Concomitant]
     Active Substance: URSODIOL
  5. CREON [Concomitant]
     Active Substance: PANCRELIPASE AMYLASE\PANCRELIPASE LIPASE\PANCRELIPASE PROTEASE
  6. HYPERSAL [Concomitant]
     Active Substance: SODIUM CHLORIDE
  7. LOVENOX [Concomitant]
     Active Substance: ENOXAPARIN SODIUM
  8. CAYSTON [Concomitant]
     Active Substance: AZTREONAM
  9. AZITHROMYCIN ANHYDROUS. [Concomitant]
     Active Substance: AZITHROMYCIN ANHYDROUS
  10. FLOVENT DISK AER [Concomitant]
  11. ZANTAC [Concomitant]
     Active Substance: RANITIDINE HYDROCHLORIDE

REACTIONS (2)
  - Infection [None]
  - Therapy cessation [None]

NARRATIVE: CASE EVENT DATE: 20190619
